FAERS Safety Report 18098522 (Version 3)
Quarter: 2020Q3

REPORT INFORMATION
  Report Type: Spontaneous
  Country: CA (occurrence: CA)
  Receive Date: 20200731
  Receipt Date: 20200819
  Transmission Date: 20201103
  Serious: Yes (Other)
  Sender: FDA-Public Use
  Company Number: CA-PFIZER INC-2020285778

PATIENT
  Age: 71 Year
  Sex: Female

DRUGS (21)
  1. SOMAVERT [Suspect]
     Active Substance: PEGVISOMANT
     Indication: ACROMEGALY
     Dosage: 10 MG, DAILY
     Route: 058
     Dates: start: 20200722
  2. JANUMET [Concomitant]
     Active Substance: METFORMIN HYDROCHLORIDE\SITAGLIPTIN PHOSPHATE
     Dosage: UNK
  3. SANDOZ AMLODIPINE [AMLODIPINE BESILATE] [Concomitant]
     Dosage: 5 MG
  4. JAMP CALCIUM [Concomitant]
     Dosage: 500 MG
  5. NOVORAPID [Concomitant]
     Active Substance: INSULIN ASPART
     Dosage: 100
  6. BETADERM [Concomitant]
     Active Substance: BETAMETHASONE VALERATE
     Dosage: UNK
  7. NOVO?GESIC [Concomitant]
     Active Substance: ACETAMINOPHEN
     Dosage: 500 MG
  8. SYNTHROID [Concomitant]
     Active Substance: LEVOTHYROXINE SODIUM
     Dosage: 0.025 MG
  9. DOSTINEX [Concomitant]
     Active Substance: CABERGOLINE
     Dosage: 0.5 MG
  10. JAMP ASA [Concomitant]
     Active Substance: ASPIRIN
     Dosage: 80 MG
  11. SANDOZ LATANOPROST [Concomitant]
     Dosage: UNK
  12. AZARGA [Concomitant]
     Active Substance: BRINZOLAMIDE\TIMOLOL MALEATE
     Dosage: UNK, 2X/DAY
  13. PROLIA [Concomitant]
     Active Substance: DENOSUMAB
     Dosage: UNK
  14. MED DORZOLAMIDE TIMOLOL [Concomitant]
     Dosage: UNK
  15. VENLAFAXINE XR [Concomitant]
     Active Substance: VENLAFAXINE HYDROCHLORIDE
     Dosage: 75 MG
  16. ATORVASTATIN [Concomitant]
     Active Substance: ATORVASTATIN
     Dosage: 80 MG
  17. D TABS [Concomitant]
     Active Substance: CHOLECALCIFEROL
     Dosage: UNK (1000)
  18. CERUMOL [CHLOROBUTANOL;DICHLOROBENZENE] [Concomitant]
     Dosage: UNK
  19. SANDOZ SODIUM BICARBONATE [Concomitant]
     Dosage: UNK
  20. SANDOZ AMLODIPINE [AMLODIPINE BESILATE] [Concomitant]
     Dosage: 5 MG
  21. LANTUS [Concomitant]
     Active Substance: INSULIN GLARGINE
     Dosage: UNK

REACTIONS (12)
  - Walking disability [Unknown]
  - Dysstasia [Unknown]
  - Stress [Unknown]
  - Circumstance or information capable of leading to medication error [Not Recovered/Not Resolved]
  - Glaucoma [Unknown]
  - Dizziness [Not Recovered/Not Resolved]
  - Osteoporosis [Unknown]
  - Blood glucose decreased [Unknown]
  - Incorrect dose administered [Unknown]
  - Product dose omission issue [Unknown]
  - Fine motor skill dysfunction [Unknown]
  - Headache [Unknown]

NARRATIVE: CASE EVENT DATE: 202007
